FAERS Safety Report 4800011-8 (Version None)
Quarter: 2005Q4

REPORT INFORMATION
  Report Type: 
  Country: None (occurrence: None)
  Receive Date: 20051013
  Receipt Date: 20051003
  Transmission Date: 20060501
  Serious: Yes (Hospitalization)
  Sender: FDA-Public Use
  Company Number: 2005137214

PATIENT
  Age: 75 Year
  Sex: Male

DRUGS (6)
  1. AMLODIPINE [Suspect]
     Indication: POSTOPERATIVE CARE
     Dosage: 1 DF (DAILY), ORAL
     Route: 048
     Dates: start: 20050330, end: 20050515
  2. PLAVIX [Suspect]
     Indication: POSTOPERATIVE CARE
     Dosage: 1DF (DAILY), ORAL
     Route: 048
     Dates: start: 20050330
  3. LOPERAMIDE HYDROCHLORIDE [Concomitant]
  4. TOPIRAMATE [Concomitant]
  5. FONZYLANE (BUFLOMEDIL HYDROCHLORIDE) [Concomitant]
  6. VIRLIX (CETIRIZINE) [Concomitant]

REACTIONS (7)
  - BETA GLOBULIN INCREASED [None]
  - BLOOD CREATININE INCREASED [None]
  - CRYOGLOBULINAEMIA [None]
  - DERMATITIS EXFOLIATIVE [None]
  - LYMPHOPENIA [None]
  - THERAPY NON-RESPONDER [None]
  - TOXIC SKIN ERUPTION [None]
